FAERS Safety Report 7464916-4 (Version None)
Quarter: 2011Q2

REPORT INFORMATION
  Report Type: 
  Country: None (occurrence: None)
  Receive Date: 20110509
  Receipt Date: 20110329
  Transmission Date: 20111010
  Serious: Yes (Other)
  Sender: FDA-Public Use
  Company Number: US-BAYER-200943229NA

PATIENT
  Age: 23 Year
  Sex: Female
  Weight: 77.098 kg

DRUGS (6)
  1. YAZ [Suspect]
  2. MOTRIN [Concomitant]
     Dosage: 800 MG, BID
  3. OTC WEIGHT LOSS PILL [Concomitant]
  4. ACETAMINOPHEN [Concomitant]
     Dosage: 500 MG, PRN
  5. YASMIN [Suspect]
  6. IBUPROFEN [Concomitant]

REACTIONS (4)
  - PAIN IN EXTREMITY [None]
  - LIMB DISCOMFORT [None]
  - DEEP VEIN THROMBOSIS [None]
  - OEDEMA PERIPHERAL [None]
